FAERS Safety Report 5269072-9 (Version None)
Quarter: 2007Q1

REPORT INFORMATION
  Report Type: 
  Country: None (occurrence: None)
  Receive Date: 20070319
  Receipt Date: 20070309
  Transmission Date: 20070707
  Serious: Yes (Hospitalization)
  Sender: FDA-Public Use
  Company Number: JP-ROCHE-486568

PATIENT
  Age: 64 Year
  Sex: Male

DRUGS (14)
  1. VALIXA [Suspect]
     Indication: CYTOMEGALOVIRUS OESOPHAGITIS
     Route: 048
     Dates: start: 20050530, end: 20050531
  2. VALIXA [Suspect]
     Route: 048
     Dates: start: 20050623, end: 20050707
  3. BAKTAR [Concomitant]
     Route: 048
     Dates: start: 20050325
  4. ZITHROMAC [Concomitant]
     Route: 048
     Dates: start: 20050418, end: 20060123
  5. DENOSINE [Concomitant]
     Indication: CYTOMEGALOVIRUS INFECTION
     Dosage: INFUSION.
     Route: 042
     Dates: start: 20050601, end: 20050622
  6. EPIVIR [Concomitant]
     Indication: HIV INFECTION
     Route: 048
     Dates: start: 20050613
  7. ZERIT [Concomitant]
     Indication: HIV INFECTION
     Route: 048
     Dates: start: 20050613
  8. KALETRA [Concomitant]
     Indication: HIV INFECTION
     Route: 048
     Dates: start: 20050613
  9. ACECOL [Concomitant]
     Route: 048
  10. ASPIRIN [Concomitant]
     Route: 048
  11. PARIET [Concomitant]
     Dosage: STOPPED ON 21 JUL 2005, RESTARTED ON 22 JUL 2005.
     Route: 048
  12. SUCRALFATE [Concomitant]
     Dosage: STOPPED ON 21 JUL 2005, RESTARTED ON 22 JUL 2005.
     Route: 048
  13. MAALOX FAST BLOCKER [Concomitant]
     Dosage: STOPPED ON 21 JUL 2005, RESTARTED ON 22 JUL 2005.
     Route: 048
  14. DEPAS [Concomitant]
     Route: 048
     Dates: end: 20050721

REACTIONS (4)
  - CONDITION AGGRAVATED [None]
  - HYPERTRIGLYCERIDAEMIA [None]
  - KAPOSI'S SARCOMA [None]
  - WHITE BLOOD CELL COUNT DECREASED [None]
